FAERS Safety Report 14940458 (Version 2)
Quarter: 2018Q2

REPORT INFORMATION
  Report Type: Spontaneous
  Country: US (occurrence: US)
  Receive Date: 20180525
  Receipt Date: 20180607
  Transmission Date: 20180711
  Serious: Yes (Hospitalization)
  Sender: FDA-Public Use
  Company Number: US-PFIZER INC-2018169509

PATIENT
  Age: 91 Year
  Sex: Female
  Weight: 48 kg

DRUGS (4)
  1. BABY ASPIRIN [Concomitant]
     Active Substance: ASPIRIN
     Dosage: 1 DF, DAILY, ^ONE TABLET IN AM^
     Route: 048
  2. SYSTANE (HYPROMELLOSE 2910 (4000 MPA.S)) [Concomitant]
     Active Substance: HYPROMELLOSE 2910 (4000 MPA.S)
     Indication: DRY EYE
     Dosage: 1 GTT, UNK, ^ONE DROP IN EACH EYE AFTER THE LATANAPROST^
     Route: 031
  3. LATANOPROST. [Suspect]
     Active Substance: LATANOPROST
     Dosage: 1 GTT, 2X/DAY,^129MCG/2.5MG, ^INSTILL 1 DROP IN BOTH EYES AT NIGHT,INSTILL 1 DROP BOTH EYES EVENING^
     Route: 031
  4. PROPANOLOL [Concomitant]
     Active Substance: PROPRANOLOL HYDROCHLORIDE
     Dosage: 1 DF, 2X/DAY, ^ONE TABLET BY MOUTH TWICE A DAY^
     Route: 048

REACTIONS (2)
  - Dizziness [Unknown]
  - Fall [Unknown]
